FAERS Safety Report 11423224 (Version 1)
Quarter: 2015Q3

REPORT INFORMATION
  Report Type: Report from Study
  Country: KR (occurrence: KR)
  Receive Date: 20150827
  Receipt Date: 20150827
  Transmission Date: 20151125
  Serious: Yes (Other)
  Sender: FDA-Public Use
  Company Number: KR-BAXTER-2015BAX047672

PATIENT

DRUGS (7)
  1. BAXTER METRONIDAZOLE INJ. 500MG [Suspect]
     Active Substance: METRONIDAZOLE
     Indication: HELICOBACTER INFECTION
     Route: 065
  2. BAXTER METRONIDAZOLE INJ. 500MG [Suspect]
     Active Substance: METRONIDAZOLE
     Route: 065
  3. CLARITHROMYCIN. [Suspect]
     Active Substance: CLARITHROMYCIN
     Indication: HELICOBACTER INFECTION
     Route: 065
  4. BISMUTH SUBCITRATE [Concomitant]
     Active Substance: BISMUTH SUBCITRATE
     Indication: HELICOBACTER INFECTION
     Route: 065
  5. AMOXICILLIN. [Suspect]
     Active Substance: AMOXICILLIN
     Indication: HELICOBACTER INFECTION
     Route: 065
  6. LANSOPRAZOLE. [Suspect]
     Active Substance: LANSOPRAZOLE
     Indication: HELICOBACTER INFECTION
     Route: 065
  7. TETRACYCLINE [Concomitant]
     Active Substance: TETRACYCLINE
     Indication: HELICOBACTER INFECTION
     Route: 065

REACTIONS (1)
  - Treatment failure [Unknown]
